FAERS Safety Report 18670824 (Version 1)
Quarter: 2020Q4

REPORT INFORMATION
  Report Type: Report from Study
  Country: US (occurrence: US)
  Receive Date: 20201228
  Receipt Date: 20201228
  Transmission Date: 20210114
  Serious: Yes (Life-Threatening)
  Sender: FDA-Public Use
  Company Number: US-PFIZER INC-2020507520

PATIENT
  Age: 76 Year
  Sex: Male
  Weight: 83 kg

DRUGS (14)
  1. VITAMIN K [Concomitant]
     Active Substance: PHYTONADIONE
     Dosage: 10 MG ON POD1
  2. PROTAMINE [Concomitant]
     Active Substance: PROTAMINE
     Indication: HAEMOSTASIS
     Dosage: 250 MG
  3. WARFARIN [Concomitant]
     Active Substance: WARFARIN
     Indication: ATRIAL FIBRILLATION
  4. CLOPIDOGREL [Concomitant]
     Active Substance: CLOPIDOGREL BISULFATE
     Indication: CEREBROVASCULAR ACCIDENT
  5. KCENTRA [Concomitant]
     Active Substance: COAGULATION FACTOR IX HUMAN\COAGULATION FACTOR VII HUMAN\COAGULATION FACTOR X HUMAN\PROTEIN C\PROTEIN S HUMAN\PROTHROMBIN
     Indication: PROCEDURAL HAEMORRHAGE
     Dosage: UNK, 500 U INTRAOPERATIVELY
  6. EPOETIN ALFA [Suspect]
     Active Substance: ERYTHROPOIETIN
     Dosage: UNK, 20000 U, POD1-4
  7. WARFARIN [Concomitant]
     Active Substance: WARFARIN
     Indication: CEREBROVASCULAR ACCIDENT
  8. CLOPIDOGREL [Concomitant]
     Active Substance: CLOPIDOGREL BISULFATE
     Indication: ATRIAL FIBRILLATION
     Dosage: UNK
  9. KCENTRA [Concomitant]
     Active Substance: COAGULATION FACTOR IX HUMAN\COAGULATION FACTOR VII HUMAN\COAGULATION FACTOR X HUMAN\PROTEIN C\PROTEIN S HUMAN\PROTHROMBIN
     Dosage: UNK, 1000 U POD0
  10. KCENTRA [Concomitant]
     Active Substance: COAGULATION FACTOR IX HUMAN\COAGULATION FACTOR VII HUMAN\COAGULATION FACTOR X HUMAN\PROTEIN C\PROTEIN S HUMAN\PROTHROMBIN
     Dosage: UNK, 500 U POD1
  11. DESMOPRESSIN [Concomitant]
     Active Substance: DESMOPRESSIN
     Indication: HAEMOSTASIS
     Dosage: 24 UG
  12. ASPIRIN (E.C.) [Concomitant]
     Active Substance: ASPIRIN
     Indication: ATRIAL FIBRILLATION
     Dosage: UNK
  13. ASPIRIN (E.C.) [Concomitant]
     Active Substance: ASPIRIN
     Indication: CEREBROVASCULAR ACCIDENT
  14. AMINOCAPROIC ACID. [Concomitant]
     Active Substance: AMINOCAPROIC ACID
     Indication: HAEMOSTASIS
     Dosage: 10 G

REACTIONS (1)
  - Deep vein thrombosis [Unknown]
